FAERS Safety Report 10240272 (Version 1)
Quarter: 2014Q2

REPORT INFORMATION
  Report Type: Report from Study
  Country: BR (occurrence: BR)
  Receive Date: 20140617
  Receipt Date: 20140617
  Transmission Date: 20141212
  Serious: Yes (Other)
  Sender: FDA-Public Use
  Company Number: PHHY2014BR073561

PATIENT
  Age: 65 Year
  Sex: Male

DRUGS (1)
  1. SANDOSTATIN LAR [Suspect]
     Dosage: UNK UKN, QMO

REACTIONS (6)
  - Prostate cancer [Unknown]
  - Cholelithiasis [Unknown]
  - Blood growth hormone abnormal [Unknown]
  - Tinnitus [Unknown]
  - Spinal disorder [Unknown]
  - Back pain [Unknown]
